FAERS Safety Report 23361446 (Version 2)
Quarter: 2024Q1

REPORT INFORMATION
  Report Type: Spontaneous
  Country: US (occurrence: US)
  Receive Date: 20240103
  Receipt Date: 20240220
  Transmission Date: 20240409
  Serious: No
  Sender: FDA-Public Use
  Company Number: US-BRISTOL-MYERS SQUIBB COMPANY-2024-001047

PATIENT
  Age: 89 Year
  Sex: Female
  Weight: 54.43 kg

DRUGS (1)
  1. POMALYST [Suspect]
     Active Substance: POMALIDOMIDE
     Indication: Plasma cell myeloma
     Route: 048

REACTIONS (5)
  - Fatigue [Unknown]
  - Blood pressure decreased [Unknown]
  - Heart rate increased [Unknown]
  - Pruritus [Unknown]
  - Dyspnoea [Unknown]
